FAERS Safety Report 23465278 (Version 1)
Quarter: 2024Q1

REPORT INFORMATION
  Report Type: Spontaneous
  Country: CN (occurrence: CN)
  Receive Date: 20240201
  Receipt Date: 20240201
  Transmission Date: 20240409
  Serious: Yes (Other)
  Sender: FDA-Public Use
  Company Number: CN-Eisai-EC-2024-157917

PATIENT
  Age: 90 Year
  Sex: Female
  Weight: 45 kg

DRUGS (1)
  1. RABEPRAZOLE [Suspect]
     Active Substance: RABEPRAZOLE
     Indication: Gastritis
     Route: 048
     Dates: start: 20240107, end: 20240109

REACTIONS (3)
  - Mental disorder [Recovered/Resolved]
  - Disorganised speech [Recovered/Resolved]
  - Hallucination [Recovered/Resolved]

NARRATIVE: CASE EVENT DATE: 20240109
